FAERS Safety Report 5240507-0 (Version None)
Quarter: 2007Q1

REPORT INFORMATION
  Report Type: 
  Country: None (occurrence: None)
  Receive Date: 20070219
  Receipt Date: 20070208
  Transmission Date: 20070707
  Serious: Yes (Other)
  Sender: FDA-Public Use
  Company Number: GB-GLAXOSMITHKLINE-B0458671A

PATIENT
  Age: 54 Year
  Sex: Male

DRUGS (4)
  1. ROSIGLITAZONE [Suspect]
     Indication: DRUG USE FOR UNKNOWN INDICATION
  2. FENOFIBRATE [Suspect]
  3. METFORMIN HYDROCHLORIDE [Concomitant]
  4. ROSUVASTATIN [Concomitant]

REACTIONS (1)
  - HIGH DENSITY LIPOPROTEIN DECREASED [None]
